FAERS Safety Report 5446470-1 (Version None)
Quarter: 2007Q3

REPORT INFORMATION
  Report Type: 
  Country: None (occurrence: None)
  Receive Date: 20070907
  Receipt Date: 20070829
  Transmission Date: 20080115
  Serious: Yes (Hospitalization)
  Sender: FDA-Public Use
  Company Number: BR-ROCHE-514756

PATIENT
  Sex: Female

DRUGS (3)
  1. ROCEPHIN [Suspect]
     Indication: PELVIC INFLAMMATORY DISEASE
     Route: 042
     Dates: start: 20061201, end: 20061201
  2. ROCEPHIN [Suspect]
     Dosage: DOSE FORM REPORTED AS VIAL. SECOND DOSE ON 31 DECEMBER 2006 WAS ADMINISTERED AS 2 GRAM (1 G VIAL) I+
     Route: 042
     Dates: start: 20061231, end: 20061231
  3. DOXYCYCLINE [Concomitant]
     Route: 048

REACTIONS (6)
  - DRUG ADMINISTRATION ERROR [None]
  - MOBILITY DECREASED [None]
  - NAUSEA [None]
  - PYREXIA [None]
  - TREMOR [None]
  - VOMITING [None]
